FAERS Safety Report 6287458-0 (Version None)
Quarter: 2009Q3

REPORT INFORMATION
  Report Type: 
  Country: None (occurrence: None)
  Receive Date: 20090727
  Receipt Date: 20090716
  Transmission Date: 20100115
  Serious: Yes (Other)
  Sender: FDA-Public Use
  Company Number: GXKR2009CA08113

PATIENT
  Age: 8 Month
  Sex: Male

DRUGS (2)
  1. DEXAMETHASONE [Suspect]
     Indication: MYELITIS
  2. IMMUNE GLOBULIN (HUMAN) [Concomitant]

REACTIONS (6)
  - AXONAL NEUROPATHY [None]
  - CLONUS [None]
  - CRITICAL ILLNESS POLYNEUROPATHY [None]
  - HYPOREFLEXIA [None]
  - NYSTAGMUS [None]
  - QUADRIPLEGIA [None]
